FAERS Safety Report 4337983-4 (Version None)
Quarter: 2004Q2

REPORT INFORMATION
  Report Type: 
  Country: None (occurrence: None)
  Receive Date: 20040407
  Receipt Date: 20040329
  Transmission Date: 20050107
  Serious: Yes (Death, Hospitalization)
  Sender: FDA-Public Use
  Company Number: EWC031036731

PATIENT
  Age: 74 Year
  Sex: Male
  Weight: 56 kg

DRUGS (31)
  1. GEMCITABINE HYDROCHLORIDE-IV (GEMCITABINE) [Suspect]
     Indication: NON-SMALL CELL LUNG CANCER
     Dosage: 1200 MG/3 OTHER
     Route: 050
     Dates: start: 20030617
  2. ZOLPIDEM TARTRATE [Concomitant]
  3. UNASYN [Concomitant]
  4. EMETROL [Concomitant]
  5. AMINOPHYLLINE [Concomitant]
  6. ASPIRIN [Concomitant]
  7. ZYRTEC [Concomitant]
  8. ALDACTONE [Concomitant]
  9. AMD [Concomitant]
  10. ZOLPIDEM TARTRATE [Concomitant]
  11. BROWN MIXTURE [Concomitant]
  12. DIGOXIN [Concomitant]
  13. PROCATEROL HCL [Concomitant]
  14. PREDNISOLONE [Concomitant]
  15. ZOLPIDEM TARTRATE [Concomitant]
  16. GASCON I(DIMETICONE) [Concomitant]
  17. CLONAZEPAM [Concomitant]
  18. AMINOPHYLLINE [Concomitant]
  19. LASIX [Concomitant]
  20. MEDICON (DEXTROMETHORPHAN HYDROBROMIDE) [Concomitant]
  21. ALDACTONE [Concomitant]
  22. NORVASC [Concomitant]
  23. TRANSAMIN  (TRANEXAMIC ACID) [Concomitant]
  24. ULCERIN [Concomitant]
  25. DIGOXIN [Concomitant]
  26. LOSEC (OMEPRAZOLE) [Concomitant]
  27. PREDNISOLONE [Concomitant]
  28. AUGMENTIN [Concomitant]
  29. AUGMENTIN [Concomitant]
  30. TRANDATE [Concomitant]
  31. METRONIDAZOLE [Concomitant]

REACTIONS (11)
  - ABNORMAL BEHAVIOUR [None]
  - ACINETOBACTER INFECTION [None]
  - ASTHENIA [None]
  - DECREASED APPETITE [None]
  - DYSPNOEA [None]
  - ENTEROCOCCAL SEPSIS [None]
  - HALLUCINATION [None]
  - PNEUMONIA [None]
  - PRODUCTIVE COUGH [None]
  - SPUTUM CULTURE POSITIVE [None]
  - WEIGHT DECREASED [None]
